FAERS Safety Report 8892164 (Version 1)
Quarter: 2012Q4

REPORT INFORMATION
  Report Type: 
  Country: US (occurrence: US)
  Receive Date: 20121107
  Receipt Date: 20121107
  Transmission Date: 20130627
  Serious: Yes (Hospitalization)
  Sender: FDA-Public Use
  Company Number: US-AMGEN-USASP2011057980

PATIENT
  Age: 65 Year

DRUGS (6)
  1. ENBREL [Suspect]
     Indication: PRODUCT USED FOR UNKNOWN INDICATION
     Dosage: 50 mg, qwk
     Route: 058
  2. LANTUS [Concomitant]
     Dosage: 100 ml, UNK
  3. PAROXETINE [Concomitant]
     Dosage: 37.5 mg, UNK
  4. EVISTA [Concomitant]
     Dosage: 60 mg, UNK
  5. PRAVASTATIN [Concomitant]
     Dosage: 10 mg, UNK
  6. BUSPIRONE [Concomitant]
     Dosage: 10 mg, UNK

REACTIONS (1)
  - Cellulitis [Unknown]
